FAERS Safety Report 5127968-2 (Version None)
Quarter: 2006Q4

REPORT INFORMATION
  Report Type: 
  Country: None (occurrence: None)
  Receive Date: 20061010
  Receipt Date: 20060928
  Transmission Date: 20070319
  Serious: Yes (Other)
  Sender: FDA-Public Use
  Company Number: 2006118441

PATIENT
  Age: 24 Year
  Sex: Male

DRUGS (3)
  1. ZOLOFT [Suspect]
     Dosage: 50 MG (1 IN 1 D) ORAL
     Route: 048
     Dates: start: 20060804, end: 20060927
  2. PAXIL [Concomitant]
  3. ANAFRANIL [Concomitant]

REACTIONS (2)
  - LACERATION [None]
  - SELF INJURIOUS BEHAVIOUR [None]
